FAERS Safety Report 22157758 (Version 4)
Quarter: 2024Q4

REPORT INFORMATION
  Report Type: Spontaneous
  Country: US (occurrence: US)
  Receive Date: 20230330
  Receipt Date: 20241118
  Transmission Date: 20250114
  Serious: Yes (Other)
  Sender: PFIZER
  Company Number: US-PFIZER INC-PV202300058306

PATIENT
  Age: 71 Year
  Sex: Female
  Weight: 90.72 kg

DRUGS (3)
  1. XELJANZ XR [Suspect]
     Active Substance: TOFACITINIB CITRATE
     Indication: Polyarthritis
     Dosage: 11 MG, 1X/DAY
     Route: 048
     Dates: start: 202211
  2. XELJANZ XR [Suspect]
     Active Substance: TOFACITINIB CITRATE
     Indication: Rheumatoid arthritis
  3. XELJANZ XR [Suspect]
     Active Substance: TOFACITINIB CITRATE
     Indication: Anaemia

REACTIONS (18)
  - Neck surgery [Unknown]
  - Craniofacial fracture [Unknown]
  - Head injury [Unknown]
  - Pain [Unknown]
  - Hypoaesthesia [Unknown]
  - Pain in extremity [Unknown]
  - Arthralgia [Unknown]
  - Carpal tunnel syndrome [Recovering/Resolving]
  - Rotator cuff syndrome [Unknown]
  - Peripheral swelling [Unknown]
  - Muscular weakness [Unknown]
  - Neck pain [Unknown]
  - Illness [Unknown]
  - Nasopharyngitis [Unknown]
  - Headache [Unknown]
  - Viral upper respiratory tract infection [Unknown]
  - Off label use [Unknown]
  - Malaise [Unknown]

NARRATIVE: CASE EVENT DATE: 20221101
